FAERS Safety Report 11778987 (Version 2)
Quarter: 2015Q4

REPORT INFORMATION
  Report Type: Spontaneous
  Country: US (occurrence: US)
  Receive Date: 20151125
  Receipt Date: 20151130
  Transmission Date: 20160304
  Serious: Yes (Other)
  Sender: FDA-Public Use
  Company Number: US-TEVA-612485USA

PATIENT
  Age: 28 Year
  Sex: Female

DRUGS (2)
  1. ZECUITY [Suspect]
     Active Substance: SUMATRIPTAN SUCCINATE
     Dosage: 6.25 MG/4 HOURS
     Route: 062
     Dates: start: 20151027
  2. ZECUITY [Suspect]
     Active Substance: SUMATRIPTAN SUCCINATE
     Dosage: 6.25 MG/4 HOURS
     Route: 062
     Dates: start: 201511

REACTIONS (5)
  - Application site burn [Unknown]
  - Application site irritation [Recovered/Resolved]
  - Application site erythema [Recovered/Resolved]
  - Device leakage [Unknown]
  - Application site scab [Recovered/Resolved]

NARRATIVE: CASE EVENT DATE: 20151027
